FAERS Safety Report 9118828 (Version 2)
Quarter: 2014Q1

REPORT INFORMATION
  Report Type: Spontaneous
  Country: FI (occurrence: FI)
  Receive Date: 20130226
  Receipt Date: 20140325
  Transmission Date: 20141002
  Serious: Yes (Hospitalization, Disabling, Other)
  Sender: FDA-Public Use
  Company Number: PHHY2012FI027425

PATIENT
  Age: 48 Year
  Sex: Female

DRUGS (7)
  1. ZOMETA [Suspect]
     Indication: METASTASES TO BONE
     Dosage: UNK UKN, UNK
     Route: 042
     Dates: start: 2006
  2. ZOMETA [Suspect]
     Dosage: UNK UKN, UNK
     Dates: start: 200806, end: 20120305
  3. HERCEPTIN ^GENENTECH^ [Suspect]
     Indication: BREAST CANCER METASTATIC
     Dosage: 380 MG, UNK
     Route: 042
     Dates: start: 200608
  4. PACLITAXEL [Concomitant]
     Indication: BREAST CANCER
     Dosage: 120 MG, UNK
     Route: 042
     Dates: start: 201110
  5. TAXANES [Concomitant]
  6. DEXAMETHASONE [Concomitant]
     Indication: BREAST CANCER
     Dosage: UNK UKN, AT TIMES
  7. EPIRUBICIN [Concomitant]
     Indication: BREAST CANCER
     Dosage: UNK UKN, UNK

REACTIONS (3)
  - Femur fracture [Recovered/Resolved]
  - Injury [Unknown]
  - Pain in extremity [Not Recovered/Not Resolved]
